FAERS Safety Report 17955696 (Version 1)
Quarter: 2020Q2

REPORT INFORMATION
  Report Type: Spontaneous
  Country: US (occurrence: US)
  Receive Date: 20200626
  Receipt Date: 20200626
  Transmission Date: 20200714
  Serious: Yes (Hospitalization)
  Sender: FDA-Public Use
  Company Number: None

PATIENT
  Age: 80 Year
  Sex: Female
  Weight: 85.5 kg

DRUGS (20)
  1. LACTULOSE. [Concomitant]
     Active Substance: LACTULOSE
  2. BENZONATATE. [Concomitant]
     Active Substance: BENZONATATE
  3. LINZESS [Concomitant]
     Active Substance: LINACLOTIDE
  4. FUROSEMIDE. [Concomitant]
     Active Substance: FUROSEMIDE
  5. SENNA S [Concomitant]
     Active Substance: DOCUSATE SODIUM\SENNA LEAF
  6. RETACRIT [Concomitant]
     Active Substance: EPOETIN ALFA-EPBX
  7. LAMOTRIGINE. [Concomitant]
     Active Substance: LAMOTRIGINE
  8. ASPIRIN. [Concomitant]
     Active Substance: ASPIRIN
  9. CRESTOR [Concomitant]
     Active Substance: ROSUVASTATIN CALCIUM
  10. PANTOPRAZOLE [Concomitant]
     Active Substance: PANTOPRAZOLE
  11. ISOSORBIDE. [Concomitant]
     Active Substance: ISOSORBIDE
  12. SUTENT [Suspect]
     Active Substance: SUNITINIB MALATE
     Indication: GASTROINTESTINAL STROMAL TUMOUR
     Route: 048
     Dates: start: 20200608
  13. METOLAZONE. [Concomitant]
     Active Substance: METOLAZONE
  14. LOSARTAN. [Concomitant]
     Active Substance: LOSARTAN
  15. FLUTICASONE-SALMETEROL [Concomitant]
  16. SUCRALFATE. [Concomitant]
     Active Substance: SUCRALFATE
  17. ELIQUIS [Concomitant]
     Active Substance: APIXABAN
  18. TRAMADOL. [Concomitant]
     Active Substance: TRAMADOL
  19. POTASSIUM CHLORIDE. [Concomitant]
     Active Substance: POTASSIUM CHLORIDE
  20. GLIMEPIRIDE. [Concomitant]
     Active Substance: GLIMEPIRIDE

REACTIONS (1)
  - Hospitalisation [None]
